FAERS Safety Report 15790545 (Version 1)
Quarter: 2019Q1

REPORT INFORMATION
  Report Type: Spontaneous
  Country: CN (occurrence: CN)
  Receive Date: 20190104
  Receipt Date: 20190104
  Transmission Date: 20190417
  Serious: Yes (Other)
  Sender: FDA-Public Use
  Company Number: CN-BAYER-2018-245575

PATIENT
  Age: 77 Year
  Sex: Female

DRUGS (5)
  1. ENOXAPARIN SODIUM. [Suspect]
     Active Substance: ENOXAPARIN SODIUM
     Dosage: 60 MG, BID
     Route: 058
     Dates: start: 20180922, end: 20180922
  2. MEGLUMINE ADENOSINE CYCLOPHOSPHATE [Concomitant]
     Active Substance: ADENOSINE CYCLIC PHOSPHATE MEGLUMINE
  3. CLOPIDOGREL BISULFATE. [Suspect]
     Active Substance: CLOPIDOGREL BISULFATE
     Indication: ACUTE MYOCARDIAL INFARCTION
     Dosage: 300 MG, QD
     Route: 048
     Dates: start: 20180922, end: 20180922
  4. LIPITOR [Concomitant]
     Active Substance: ATORVASTATIN CALCIUM
  5. BAYASPIRIN 100 MG [Suspect]
     Active Substance: ASPIRIN
     Indication: ACUTE MYOCARDIAL INFARCTION
     Dosage: 300 MG, QD
     Dates: start: 20180922, end: 20180922

REACTIONS (1)
  - Coagulation time prolonged [Recovering/Resolving]

NARRATIVE: CASE EVENT DATE: 20181113
